FAERS Safety Report 6065736-8 (Version None)
Quarter: 2009Q1

REPORT INFORMATION
  Report Type: 
  Country: None (occurrence: None)
  Receive Date: 20090202
  Receipt Date: 20090116
  Transmission Date: 20090719
  Serious: Yes (Death)
  Sender: FDA-Public Use
  Company Number: 2009S1000113

PATIENT
  Age: 34 Year
  Sex: Male

DRUGS (11)
  1. ROXICODONE [Suspect]
     Dosage: PO
     Route: 048
     Dates: end: 20070101
  2. COLCHICINE [Suspect]
     Dosage: PO
     Route: 048
     Dates: end: 20070101
  3. ATENOLOL [Suspect]
     Dosage: PO
     Route: 048
     Dates: end: 20070101
  4. PHENYTOIN [Suspect]
     Dosage: PO
     Route: 048
     Dates: end: 20070101
  5. FENOFIBRATE [Suspect]
     Dosage: PO
     Route: 048
     Dates: end: 20070101
  6. TRAZODONE HCL [Suspect]
     Dosage: PO
     Route: 048
     Dates: end: 20070101
  7. GEMFIBROZIL [Suspect]
     Dosage: PO
     Route: 048
     Dates: end: 20070101
  8. MIRTAZAPINE [Suspect]
     Dosage: PO
     Route: 048
     Dates: end: 20070101
  9. HALOPERIDOL [Suspect]
     Dates: end: 20070101
  10. INDOMETHACIN [Suspect]
     Dosage: PO
     Route: 048
     Dates: end: 20070101
  11. LOSARTAN POTASSIUM [Suspect]
     Dosage: PO
     Route: 048
     Dates: end: 20070101

REACTIONS (1)
  - COMPLETED SUICIDE [None]
